FAERS Safety Report 12383404 (Version 1)
Quarter: 2016Q2

REPORT INFORMATION
  Report Type: Spontaneous
  Country: US (occurrence: US)
  Receive Date: 20160518
  Receipt Date: 20160518
  Transmission Date: 20160815
  Serious: Yes (Hospitalization, Other)
  Sender: FDA-Public Use
  Company Number: US-BIOGEN-2015BI024734

PATIENT
  Sex: Female

DRUGS (1)
  1. TECFIDERA [Suspect]
     Active Substance: DIMETHYL FUMARATE
     Indication: MULTIPLE SCLEROSIS
     Route: 048
     Dates: start: 20130926

REACTIONS (7)
  - Brain injury [Not Recovered/Not Resolved]
  - Cerebrovascular accident [Recovered/Resolved]
  - Apparent death [Unknown]
  - Road traffic accident [Recovered/Resolved]
  - Mental impairment [Unknown]
  - Confusional state [Not Recovered/Not Resolved]
  - Time perception altered [Not Recovered/Not Resolved]
